FAERS Safety Report 5028091-8 (Version None)
Quarter: 2006Q2

REPORT INFORMATION
  Report Type: 
  Country: None (occurrence: None)
  Receive Date: 20060609
  Receipt Date: 20060526
  Transmission Date: 20061013
  Serious: Yes (Other)
  Sender: FDA-Public Use
  Company Number: 225424

PATIENT
  Age: 51 Year
  Sex: Female
  Weight: 106.6 kg

DRUGS (6)
  1. NUTROPIN AQ [Suspect]
     Indication: EMPTY SELLA SYNDROME
     Dosage: 0.4 MG, 7/WEEK, SUBCUTANEOUS
     Route: 058
     Dates: start: 20041115
  2. ACTONEL [Concomitant]
  3. COREG [Concomitant]
  4. DHEA (DEHYDROEPIANDROSTERONE) [Concomitant]
  5. EFFEXOR [Concomitant]
  6. MIACALCIN [Concomitant]

REACTIONS (1)
  - DIABETES MELLITUS NON-INSULIN-DEPENDENT [None]
